FAERS Safety Report 10377849 (Version 1)
Quarter: 2014Q3

REPORT INFORMATION
  Report Type: Spontaneous
  Country: CN (occurrence: CN)
  Receive Date: 20140812
  Receipt Date: 20140812
  Transmission Date: 20150326
  Serious: Yes (Hospitalization, Other)
  Sender: FDA-Public Use
  Company Number: PHHY2014CN097212

PATIENT
  Age: 52 Year
  Sex: Female

DRUGS (4)
  1. CLOZAPINE. [Suspect]
     Active Substance: CLOZAPINE
     Dosage: 2400 MG, DAILY
  2. ESTAZOLAM. [Concomitant]
     Active Substance: ESTAZOLAM
  3. CLOZAPINE. [Suspect]
     Active Substance: CLOZAPINE
     Indication: DEPRESSION
     Dosage: 200 MG, DAILY
  4. TRIHEXYPHENIDYL [Concomitant]
     Active Substance: TRIHEXYPHENIDYL
     Dosage: 8 MG, DAILY

REACTIONS (15)
  - Myotonia [Recovering/Resolving]
  - Flatulence [Not Recovered/Not Resolved]
  - Pyrexia [Recovering/Resolving]
  - Neuroleptic malignant syndrome [Recovering/Resolving]
  - Tremor [Recovering/Resolving]
  - Hyperthermia [Recovering/Resolving]
  - Muscle rigidity [Recovering/Resolving]
  - Poisoning [Recovering/Resolving]
  - Disorientation [Recovering/Resolving]
  - Loss of consciousness [Recovering/Resolving]
  - Hyperhidrosis [Recovering/Resolving]
  - Intestinal dilatation [Recovering/Resolving]
  - Pneumonia [Recovering/Resolving]
  - Leukocytosis [Recovering/Resolving]
  - Drug level increased [Unknown]
